FAERS Safety Report 7874258-0 (Version None)
Quarter: 2011Q4

REPORT INFORMATION
  Report Type: 
  Country: None (occurrence: None)
  Receive Date: 20111030
  Receipt Date: 20110518
  Transmission Date: 20120403
  Serious: No
  Sender: FDA-Public Use
  Company Number: US-AMGEN-USASP2011025708

PATIENT
  Age: 57 Year
  Sex: Female

DRUGS (3)
  1. ENBREL [Suspect]
     Indication: RHEUMATOID ARTHRITIS
     Dosage: 50 MG, QWK
     Dates: start: 20090706
  2. NEURONTIN [Concomitant]
     Dosage: UNK
  3. ZOCOR [Concomitant]
     Dosage: UNK

REACTIONS (4)
  - FATIGUE [None]
  - RESTLESS LEGS SYNDROME [None]
  - INJURY ASSOCIATED WITH DEVICE [None]
  - ALOPECIA [None]
